FAERS Safety Report 18724830 (Version 1)
Quarter: 2021Q1

REPORT INFORMATION
  Report Type: Spontaneous
  Country: US (occurrence: US)
  Receive Date: 20210111
  Receipt Date: 20210111
  Transmission Date: 20210419
  Serious: Yes (Hospitalization, Other)
  Sender: FDA-Public Use
  Company Number: US-PFIZER INC-2021007836

PATIENT
  Age: 83 Year
  Sex: Female
  Weight: 73.7 kg

DRUGS (1)
  1. TIKOSYN [Suspect]
     Active Substance: DOFETILIDE
     Indication: VENTRICULAR FIBRILLATION
     Dosage: 50 UG, 2X/DAY (EVERY 12 HOURS BY MOUTH)
     Route: 048

REACTIONS (2)
  - Product dose omission issue [Unknown]
  - Arthritis bacterial [Unknown]
